FAERS Safety Report 8524424-6 (Version None)
Quarter: 2012Q3

REPORT INFORMATION
  Report Type: 
  Country: None (occurrence: None)
  Receive Date: 20120720
  Receipt Date: 20120713
  Transmission Date: 20120928
  Serious: Yes (Hospitalization)
  Sender: FDA-Public Use
  Company Number: DK-B.I. PHARMACEUTICALS,INC./RIDGEFIELD-2012-SW-00575DB

PATIENT
  Sex: Male
  Weight: 78 kg

DRUGS (6)
  1. ATORVASTATIN CALCIUM [Concomitant]
     Indication: MYOCARDIAL ISCHAEMIA
  2. ASPIRIN [Concomitant]
     Indication: MYOCARDIAL ISCHAEMIA
  3. PRADAXA [Suspect]
     Indication: ATRIAL FIBRILLATION
     Dosage: 300 MG
     Route: 048
     Dates: start: 20120213, end: 20120704
  4. TAMSIN [Concomitant]
     Indication: BENIGN PROSTATIC HYPERPLASIA
  5. BISOPROLOL FUMARATE [Concomitant]
     Indication: MYOCARDIAL ISCHAEMIA
  6. FINASTERID ORION [Concomitant]
     Indication: PROSTATIC DISORDER

REACTIONS (2)
  - CHEST PAIN [None]
  - ACUTE MYOCARDIAL INFARCTION [None]
